FAERS Safety Report 8342056-X (Version None)
Quarter: 2012Q2

REPORT INFORMATION
  Report Type: 
  Country: None (occurrence: None)
  Receive Date: 20120507
  Receipt Date: 20120424
  Transmission Date: 20120825
  Serious: Yes (Death)
  Sender: FDA-Public Use
  Company Number: CA-MYLANLABS-2012S1008781

PATIENT
  Age: 74 Year
  Sex: Female

DRUGS (2)
  1. FENTANYL [Suspect]
     Route: 065
  2. PAROXETINE [Suspect]
     Route: 065

REACTIONS (1)
  - SEROTONIN SYNDROME [None]
